FAERS Safety Report 5857410-5 (Version None)
Quarter: 2008Q3

REPORT INFORMATION
  Report Type: 
  Country: None (occurrence: None)
  Receive Date: 20080826
  Receipt Date: 20080821
  Transmission Date: 20090109
  Serious: Yes (Hospitalization)
  Sender: FDA-Public Use
  Company Number: IT-BRISTOL-MYERS SQUIBB COMPANY-14310700

PATIENT
  Age: 52 Year
  Sex: Male

DRUGS (2)
  1. SPRYCEL (CML) TABS 100 MG [Suspect]
     Indication: CHRONIC MYELOID LEUKAEMIA
     Dosage: STOPPED-11JUN08 RESTART15JUL-50MG TWICE DAILY,INCREASED 70MG TWICE DAILY ON 22JUL08 AND ONGOING.
     Route: 048
     Dates: start: 20071109
  2. VALCYTE [Concomitant]

REACTIONS (1)
  - BONE MARROW TOXICITY [None]
